FAERS Safety Report 9596799 (Version 2)
Quarter: 2013Q4

REPORT INFORMATION
  Report Type: Report from Study
  Country: JP (occurrence: JP)
  Receive Date: 20131004
  Receipt Date: 20131009
  Transmission Date: 20140711
  Serious: Yes (Death)
  Sender: FDA-Public Use
  Company Number: JP-TAKEDA-TCI2013A05899

PATIENT
  Age: 86 Year
  Sex: Male
  Weight: 67 kg

DRUGS (8)
  1. ALOGLIPTIN [Suspect]
     Indication: TYPE 2 DIABETES MELLITUS
     Dosage: 6.25 MG, QD
     Dates: start: 20120907, end: 20120910
  2. BAYASPIRIN [Concomitant]
     Route: 048
  3. BAYASPIRIN [Concomitant]
     Route: 048
  4. PERSANTIN [Concomitant]
     Route: 048
  5. FLIVAS [Concomitant]
     Route: 048
  6. FLIVAS [Concomitant]
     Route: 048
  7. LASIX                              /00032601/ [Concomitant]
     Route: 048
  8. LASIX [Concomitant]
     Route: 048

REACTIONS (2)
  - Death [Fatal]
  - Cardiac death [Fatal]
